FAERS Safety Report 6577873-X (Version None)
Quarter: 2010Q1

REPORT INFORMATION
  Report Type: 
  Country: None (occurrence: None)
  Receive Date: 20100211
  Receipt Date: 20100202
  Transmission Date: 20100710
  Serious: Yes (Other)
  Sender: FDA-Public Use
  Company Number: US-PFIZER INC-2010011891

PATIENT
  Sex: Male
  Weight: 63 kg

DRUGS (1)
  1. CHANTIX [Suspect]
     Indication: SMOKING CESSATION THERAPY
     Dosage: 1 MG, 2X/DAY
     Dates: end: 20100125

REACTIONS (4)
  - HEART RATE INCREASED [None]
  - MYALGIA [None]
  - NEURALGIA [None]
  - RENAL PAIN [None]
